FAERS Safety Report 15803809 (Version 3)
Quarter: 2019Q1

REPORT INFORMATION
  Report Type: Report from Study
  Country: CA (occurrence: CA)
  Receive Date: 20190109
  Receipt Date: 20190219
  Transmission Date: 20190417
  Serious: Yes (Other)
  Sender: FDA-Public Use
  Company Number: CA-JNJFOC-20190107149

PATIENT
  Age: 67 Year
  Sex: Female
  Weight: 49.9 kg

DRUGS (1)
  1. REMICADE [Suspect]
     Active Substance: INFLIXIMAB
     Indication: CROHN^S DISEASE
     Dosage: STRENGTH = 500 MG
     Route: 042
     Dates: start: 20140130, end: 20190212

REACTIONS (4)
  - Product use issue [Unknown]
  - Malignant respiratory tract neoplasm [Not Recovered/Not Resolved]
  - Nasal sinus cancer [Unknown]
  - Off label use [Unknown]

NARRATIVE: CASE EVENT DATE: 20140130
